FAERS Safety Report 25151638 (Version 2)
Quarter: 2025Q2

REPORT INFORMATION
  Report Type: Spontaneous
  Country: US (occurrence: US)
  Receive Date: 20250402
  Receipt Date: 20250429
  Transmission Date: 20250717
  Serious: Yes (Hospitalization, Other)
  Sender: CALLIDITAS THERAPEUTICS AB
  Company Number: US-Calliditas-2025CAL00856

PATIENT
  Age: 68 Year
  Sex: Male

DRUGS (6)
  1. TARPEYO [Suspect]
     Active Substance: BUDESONIDE
     Indication: IgA nephropathy
     Route: 048
     Dates: start: 202410, end: 20250228
  2. JARDIANCE [Suspect]
     Active Substance: EMPAGLIFLOZIN
     Indication: IgA nephropathy
  3. AMLODIPINE [Concomitant]
     Active Substance: AMLODIPINE BESYLATE
  4. TELMISARTAN [Concomitant]
     Active Substance: TELMISARTAN
  5. GABAPENTIN [Concomitant]
     Active Substance: GABAPENTIN
  6. OMEPRAZOLE [Concomitant]
     Active Substance: OMEPRAZOLE

REACTIONS (2)
  - Peripheral arterial occlusive disease [Recovering/Resolving]
  - Toe amputation [Recovering/Resolving]
